FAERS Safety Report 20976031 (Version 1)
Quarter: 2022Q2

REPORT INFORMATION
  Report Type: Spontaneous
  Country: US (occurrence: US)
  Receive Date: 20220617
  Receipt Date: 20220617
  Transmission Date: 20220721
  Serious: Yes (Other)
  Sender: FDA-Public Use
  Company Number: US-TEVA-2022-US-2046170

PATIENT
  Age: 71 Year
  Sex: Female

DRUGS (1)
  1. FAMCICLOVIR [Suspect]
     Active Substance: FAMCICLOVIR
     Route: 065

REACTIONS (8)
  - Neuropathy peripheral [Unknown]
  - Pain [Unknown]
  - Alopecia [Unknown]
  - Pruritus [Unknown]
  - Headache [Unknown]
  - Hypersensitivity [Unknown]
  - Dizziness [Unknown]
  - Formication [Unknown]
